FAERS Safety Report 19229936 (Version 1)
Quarter: 2021Q2

REPORT INFORMATION
  Report Type: Spontaneous
  Country: US (occurrence: US)
  Receive Date: 20210506
  Receipt Date: 20210506
  Transmission Date: 20210717
  Serious: No
  Sender: FDA-Public Use
  Company Number: US-PURDUE-USA-2021-0233445

PATIENT
  Sex: Female

DRUGS (1)
  1. LIDOCAINE. [Suspect]
     Active Substance: LIDOCAINE
     Indication: PAIN
     Dosage: 1 PATCH, UNK
     Route: 062
     Dates: start: 20210307

REACTIONS (2)
  - Application site erythema [Unknown]
  - Application site pain [Unknown]

NARRATIVE: CASE EVENT DATE: 20210307
